FAERS Safety Report 5767191-1 (Version None)
Quarter: 2008Q2

REPORT INFORMATION
  Report Type: 
  Country: None (occurrence: None)
  Receive Date: 20080611
  Receipt Date: 20080611
  Transmission Date: 20081010
  Serious: Yes (Hospitalization)
  Sender: FDA-Public Use
  Company Number: None

PATIENT
  Age: 54 Year
  Sex: Male
  Weight: 143.3367 kg

DRUGS (2)
  1. REVLIMID [Suspect]
     Indication: LYMPHOMA
     Dosage: DAYS 1-21 ORAL
     Route: 048
     Dates: start: 20080522, end: 20080527
  2. REVLIMID [Suspect]
     Indication: RECURRENT CANCER
     Dosage: DAYS 1-21 ORAL
     Route: 048
     Dates: start: 20080522, end: 20080527

REACTIONS (3)
  - ABDOMINAL DISCOMFORT [None]
  - MUSCLE SPASMS [None]
  - TUMOUR LYSIS SYNDROME [None]
